FAERS Safety Report 9996497 (Version 2)
Quarter: 2015Q3

REPORT INFORMATION
  Report Type: Spontaneous
  Country: US (occurrence: US)
  Receive Date: 20140311
  Receipt Date: 20150721
  Transmission Date: 20151125
  Serious: No
  Sender: FDA-Public Use
  Company Number: US-GILEAD-2012-0065847

PATIENT
  Sex: Male

DRUGS (1)
  1. VISTIDE [Suspect]
     Active Substance: CIDOFOVIR
     Indication: HERPES SIMPLEX
     Route: 042

REACTIONS (2)
  - Blood creatinine increased [Unknown]
  - Renal impairment [Unknown]
